FAERS Safety Report 6588899-4 (Version None)
Quarter: 2010Q1

REPORT INFORMATION
  Report Type: 
  Country: None (occurrence: None)
  Receive Date: 20100218
  Receipt Date: 20100210
  Transmission Date: 20100710
  Serious: Yes (Other)
  Sender: FDA-Public Use
  Company Number: GB-B.I. PHARMACEUTICALS,INC./RIDGEFIELD-2010-UK-00118UK

PATIENT
  Age: 36 Year
  Sex: Female

DRUGS (1)
  1. DULCO-LAX 5MG TABLETS (00015/0240-1) [Suspect]
     Indication: INTESTINAL FUNCTIONAL DISORDER
     Route: 048

REACTIONS (2)
  - DRUG ABUSE [None]
  - RASH [None]
